FAERS Safety Report 19300555 (Version 3)
Quarter: 2021Q3

REPORT INFORMATION
  Report Type: Spontaneous
  Country: US (occurrence: US)
  Receive Date: 20210525
  Receipt Date: 20210906
  Transmission Date: 20211014
  Serious: Yes (Life-Threatening)
  Sender: FDA-Public Use
  Company Number: US-PFIZER INC-2021542754

PATIENT
  Age: 48 Year
  Sex: Female

DRUGS (2)
  1. EPINEPHRINE. [Suspect]
     Active Substance: EPINEPHRINE
     Indication: SWELLING FACE
  2. EPINEPHRINE. [Suspect]
     Active Substance: EPINEPHRINE
     Indication: ANAPHYLACTIC REACTION
     Dosage: UNK
     Route: 030

REACTIONS (4)
  - Vascular stent thrombosis [Recovering/Resolving]
  - Acute coronary syndrome [Recovering/Resolving]
  - Chest pain [Unknown]
  - Vasospasm [Unknown]
